FAERS Safety Report 25707860 (Version 1)
Quarter: 2025Q3

REPORT INFORMATION
  Report Type: Spontaneous
  Country: EU (occurrence: EU)
  Receive Date: 20250820
  Receipt Date: 20250820
  Transmission Date: 20251021
  Serious: Yes (Disabling, Other)
  Sender: NOVARTIS
  Company Number: None

PATIENT
  Age: 49 Year
  Sex: Female

DRUGS (1)
  1. OFATUMUMAB [Suspect]
     Active Substance: OFATUMUMAB
     Indication: Relapsing-remitting multiple sclerosis
     Route: 058
     Dates: start: 20250226, end: 20250715

REACTIONS (1)
  - Endocrine ophthalmopathy [Not Recovered/Not Resolved]

NARRATIVE: CASE EVENT DATE: 20250301
